FAERS Safety Report 16119613 (Version 4)
Quarter: 2019Q3

REPORT INFORMATION
  Report Type: Spontaneous
  Country: US (occurrence: US)
  Receive Date: 20190326
  Receipt Date: 20190912
  Transmission Date: 20191004
  Serious: Yes (Hospitalization)
  Sender: FDA-Public Use
  Company Number: US-VIFOR (INTERNATIONAL) INC.-VIT-2019-02664

PATIENT
  Age: 78 Year
  Sex: Male
  Weight: 95.34 kg

DRUGS (19)
  1. ATORVASTATIN CALCIUM. [Concomitant]
     Active Substance: ATORVASTATIN CALCIUM
  2. NORCO [Concomitant]
     Active Substance: ACETAMINOPHEN\HYDROCODONE BITARTRATE
  3. ALLOPURINOL. [Concomitant]
     Active Substance: ALLOPURINOL
  4. COLACE [Concomitant]
     Active Substance: DOCUSATE SODIUM
  5. METOPROLOL TARTRATE. [Concomitant]
     Active Substance: METOPROLOL TARTRATE
  6. PREDNISONE. [Concomitant]
     Active Substance: PREDNISONE
  7. VITAMIN D [Concomitant]
     Active Substance: VITAMIN D NOS
  8. VELTASSA [Suspect]
     Active Substance: PATIROMER
     Route: 048
     Dates: start: 2019
  9. AMLODIPINE BESYLATE. [Concomitant]
     Active Substance: AMLODIPINE BESYLATE
  10. FUROSEMIDE. [Concomitant]
     Active Substance: FUROSEMIDE
  11. RAPAMUNE [Concomitant]
     Active Substance: SIROLIMUS
  12. TOUJEO [Concomitant]
     Active Substance: INSULIN GLARGINE
  13. GLIPIZIDE. [Concomitant]
     Active Substance: GLIPIZIDE
  14. LEVOTHYROXINE SODIUM. [Concomitant]
     Active Substance: LEVOTHYROXINE SODIUM
  15. FENOFIBRATE. [Concomitant]
     Active Substance: FENOFIBRATE
  16. VELTASSA [Suspect]
     Active Substance: PATIROMER
     Indication: HYPERKALAEMIA
     Route: 048
     Dates: start: 20180403, end: 2019
  17. PANTOPRAZOLE SODIUM. [Concomitant]
     Active Substance: PANTOPRAZOLE SODIUM
  18. CELLCEPT [Concomitant]
     Active Substance: MYCOPHENOLATE MOFETIL\MYCOPHENOLATE MOFETIL HYDROCHLORIDE
  19. TYLENOL [Concomitant]
     Active Substance: ACETAMINOPHEN

REACTIONS (16)
  - Muscle spasms [Unknown]
  - Impaired driving ability [Unknown]
  - Fall [Unknown]
  - Disorientation [Unknown]
  - Constipation [Unknown]
  - Product dose omission [Unknown]
  - Off label use [Unknown]
  - Ingrowing nail [Unknown]
  - Feeling abnormal [Unknown]
  - Pneumonia [Unknown]
  - Fatigue [Unknown]
  - Peripheral swelling [Unknown]
  - Dizziness [Unknown]
  - Flatulence [Unknown]
  - Blood pressure abnormal [Unknown]
  - Muscular weakness [Unknown]

NARRATIVE: CASE EVENT DATE: 20190224
